FAERS Safety Report 12143992 (Version 1)
Quarter: 2016Q1

REPORT INFORMATION
  Report Type: Spontaneous
  Country: US (occurrence: US)
  Receive Date: 20160304
  Receipt Date: 20160304
  Transmission Date: 20160526
  Serious: Yes (Other)
  Sender: FDA-Public Use
  Company Number: US-ROCHE-1720261

PATIENT
  Sex: Male

DRUGS (1)
  1. LUCENTIS [Suspect]
     Active Substance: RANIBIZUMAB
     Indication: AGE-RELATED MACULAR DEGENERATION
     Dosage: EVERY SIX WEEK, FOR ABOUT 4 YEARS.
     Route: 065

REACTIONS (2)
  - Skin abrasion [Recovering/Resolving]
  - Blindness transient [Recovering/Resolving]
